FAERS Safety Report 16250911 (Version 1)
Quarter: 2019Q2

REPORT INFORMATION
  Report Type: Spontaneous
  Country: US (occurrence: US)
  Receive Date: 20190325
  Receipt Date: 20190325
  Transmission Date: 20190711
  Serious: Yes (Hospitalization)
  Sender: FDA-Public Use
  Company Number: None

PATIENT
  Age: 65 Year
  Sex: Male
  Weight: 56.9 kg

DRUGS (2)
  1. BEVACIZUMAB. [Suspect]
     Active Substance: BEVACIZUMAB
     Indication: GLIOBLASTOMA
     Route: 042
     Dates: start: 20180521, end: 20190115
  2. NIVOLUMAB 240MG [Suspect]
     Active Substance: NIVOLUMAB
     Indication: GLIOBLASTOMA
     Route: 042
     Dates: start: 20180521, end: 20190115

REACTIONS (1)
  - Haemorrhage intracranial [None]
